FAERS Safety Report 5039429-X (Version None)
Quarter: 2006Q2

REPORT INFORMATION
  Report Type: 
  Country: None (occurrence: None)
  Receive Date: 20060623
  Receipt Date: 20060612
  Transmission Date: 20061013
  Serious: Yes (Other)
  Sender: FDA-Public Use
  Company Number: HQWYE887206JUL04

PATIENT
  Age: 54 Year
  Sex: Female
  Weight: 59.93 kg

DRUGS (2)
  1. PREMPRO [Suspect]
     Indication: HORMONE REPLACEMENT THERAPY
  2. FEMHRT [Suspect]

REACTIONS (6)
  - BREAST CANCER METASTATIC [None]
  - CARCINOEMBRYONIC ANTIGEN INCREASED [None]
  - LABORATORY TEST ABNORMAL [None]
  - METASTASES TO LYMPH NODES [None]
  - OESTROGEN RECEPTOR ASSAY POSITIVE [None]
  - PROGESTERONE RECEPTOR ASSAY POSITIVE [None]
